FAERS Safety Report 24072510 (Version 1)
Quarter: 2024Q3

REPORT INFORMATION
  Report Type: Spontaneous
  Country: US (occurrence: None)
  Receive Date: 20240709
  Receipt Date: 20240709
  Transmission Date: 20241017
  Serious: No
  Sender: Public
  Company Number: None

PATIENT
  Age: 47 Year
  Sex: Female
  Weight: 71.1 kg

DRUGS (1)
  1. ZYRTEC [Suspect]
     Active Substance: CETIRIZINE HYDROCHLORIDE
     Indication: Seasonal allergy
     Dosage: 1 TABLET  DAILY ORAL
     Route: 048
     Dates: start: 20240201, end: 20240627

REACTIONS (3)
  - Pruritus [None]
  - Headache [None]
  - Therapy cessation [None]
